FAERS Safety Report 8959076 (Version 3)
Quarter: 2013Q1

REPORT INFORMATION
  Report Type: Spontaneous
  Country: US (occurrence: US)
  Receive Date: 20121212
  Receipt Date: 20130104
  Transmission Date: 20140127
  Serious: Yes (Death)
  Sender: FDA-Public Use
  Company Number: US-009507513-1212USA003357

PATIENT
  Sex: Male

DRUGS (1)
  1. EMEND [Suspect]
     Indication: PROPHYLAXIS OF NAUSEA AND VOMITING
     Dosage: 125MG ON DAY1 AND 80MG ON DAYS 2 AND 3, CYCLICAL
     Route: 048
     Dates: start: 201106, end: 201203

REACTIONS (1)
  - Gastric cancer [Fatal]
